FAERS Safety Report 17533102 (Version 1)
Quarter: 2020Q1

REPORT INFORMATION
  Report Type: Spontaneous
  Country: US (occurrence: US)
  Receive Date: 20200312
  Receipt Date: 20200312
  Transmission Date: 20200409
  Serious: Yes (Other)
  Sender: FDA-Public Use
  Company Number: US-SAOL THERAPEUTICS-2020SAO00065

PATIENT
  Sex: Male
  Weight: 35 kg

DRUGS (1)
  1. LIORESAL [Suspect]
     Active Substance: BACLOFEN
     Dosage: 374 ?G, \DAY
     Route: 037

REACTIONS (3)
  - Therapeutic response changed [Recovered/Resolved]
  - Cerebrospinal fluid leakage [Recovered/Resolved]
  - Pseudomeningocele [Recovered/Resolved]
